FAERS Safety Report 19217120 (Version 1)
Quarter: 2021Q2

REPORT INFORMATION
  Report Type: Spontaneous
  Country: DE (occurrence: DE)
  Receive Date: 20210505
  Receipt Date: 20210505
  Transmission Date: 20210717
  Serious: Yes (Hospitalization)
  Sender: FDA-Public Use
  Company Number: DE-PFIZER INC-2021440312

PATIENT
  Age: 67 Year
  Sex: Female

DRUGS (4)
  1. TALAZOPARIB. [Suspect]
     Active Substance: TALAZOPARIB
     Dosage: 1 MG, DAILY (2 CYCLES)
     Route: 048
     Dates: start: 202009, end: 202010
  2. DENOSUMAB [Suspect]
     Active Substance: DENOSUMAB
     Dosage: 120 MG, EVERY 28 DAYS
     Route: 058
     Dates: end: 202010
  3. NAB?PACLITAXEL [Suspect]
     Active Substance: PACLITAXEL
     Dosage: 100 MG/M2, CYCLIC ((100 MG/M2 KOF) D1+8+15 )
     Dates: start: 202010, end: 202101
  4. PEMBROLIZUMAB. [Suspect]
     Active Substance: PEMBROLIZUMAB
     Dosage: 200 MG, CYCLIC ((200 MG) D1 Q21D)
     Dates: start: 202010, end: 202101

REACTIONS (3)
  - Anaemia [Unknown]
  - Neoplasm progression [Unknown]
  - General physical health deterioration [Unknown]

NARRATIVE: CASE EVENT DATE: 202010
